FAERS Safety Report 17226711 (Version 1)
Quarter: 2020Q1

REPORT INFORMATION
  Report Type: Spontaneous
  Country: US (occurrence: US)
  Receive Date: 20200102
  Receipt Date: 20200102
  Transmission Date: 20200409
  Serious: No
  Sender: FDA-Public Use
  Company Number: US-BAUSCH-BL-2019-066838

PATIENT
  Sex: Male

DRUGS (2)
  1. PROLENSA [Suspect]
     Active Substance: BROMFENAC SODIUM
     Indication: PRODUCT USE IN UNAPPROVED INDICATION
  2. PROLENSA [Suspect]
     Active Substance: BROMFENAC SODIUM
     Indication: CHOROID MELANOMA
     Route: 065

REACTIONS (1)
  - Product use in unapproved indication [Unknown]
